FAERS Safety Report 24803966 (Version 2)
Quarter: 2025Q2

REPORT INFORMATION
  Report Type: Spontaneous
  Country: US (occurrence: US)
  Receive Date: 20250103
  Receipt Date: 20250623
  Transmission Date: 20250717
  Serious: No
  Sender: SANOFI AVENTIS
  Company Number: US-SA-2025SA001176

PATIENT
  Age: 9 Year
  Sex: Female

DRUGS (2)
  1. DUPIXENT [Suspect]
     Active Substance: DUPILUMAB
     Indication: Dermatitis atopic
     Route: 058
     Dates: start: 20241228, end: 20241228
  2. DUPIXENT [Suspect]
     Active Substance: DUPILUMAB
     Dosage: 300 MG, Q4W
     Route: 058

REACTIONS (4)
  - Dry skin [Unknown]
  - Accidental exposure to product [Unknown]
  - Exposure via skin contact [Unknown]
  - Incorrect dose administered [Unknown]

NARRATIVE: CASE EVENT DATE: 20241228
